FAERS Safety Report 6815272-3 (Version None)
Quarter: 2010Q3

REPORT INFORMATION
  Report Type: 
  Country: None (occurrence: None)
  Receive Date: 20100702
  Receipt Date: 20100621
  Transmission Date: 20110219
  Serious: Yes (Hospitalization)
  Sender: FDA-Public Use
  Company Number: ES-ELI_LILLY_AND_COMPANY-ES201006007122

PATIENT
  Sex: Female
  Weight: 68 kg

DRUGS (11)
  1. FORTEO [Suspect]
     Indication: OSTEOPOROSIS
     Dosage: 20 UG, DAILY (1/D)
     Route: 058
     Dates: start: 20060101
  2. PROPAFENONE HCL [Concomitant]
     Indication: ARRHYTHMIA
     Dosage: UNK, DAILY (1/D)
     Route: 048
  3. LEVOTHROID [Concomitant]
     Indication: HYPOTHYROIDISM
     Dosage: 150 MG, DAILY (1/D)
     Route: 048
  4. NEURONTIN [Concomitant]
     Dosage: UNK, UNKNOWN
     Route: 048
  5. SEGURIL [Concomitant]
     Indication: FLUID RETENTION
     Dosage: UNK, UNKNOWN
     Route: 048
  6. DACORTIN [Concomitant]
     Indication: BRONCHITIS
     Dosage: UNK, DAILY (1/D)
     Route: 048
  7. DIAMICRON [Concomitant]
     Indication: DIABETES MELLITUS
     Dosage: UNK, DAILY (1/D)
     Route: 048
  8. SINVASTATINA [Concomitant]
  9. TRANKIMAZIN [Concomitant]
     Indication: SLEEP DISORDER
     Dosage: UNK, UNKNOWN
     Route: 048
  10. SPIRIVA [Concomitant]
     Indication: BRONCHITIS
     Dosage: UNK, UNKNOWN
     Route: 055
  11. SERETIDE [Concomitant]
     Indication: BRONCHITIS
     Dosage: UNK, DAILY (1/D)
     Route: 055

REACTIONS (1)
  - PSEUDOMONAS BRONCHITIS [None]
